FAERS Safety Report 13544250 (Version 1)
Quarter: 2017Q2

REPORT INFORMATION
  Report Type: Spontaneous
  Country: US (occurrence: US)
  Receive Date: 20170515
  Receipt Date: 20170515
  Transmission Date: 20170830
  Serious: No
  Sender: FDA-Public Use
  Company Number: US-BAYER-2017-091028

PATIENT
  Age: 54 Year
  Sex: Male
  Weight: 93 kg

DRUGS (1)
  1. ALEVE [Suspect]
     Active Substance: NAPROXEN SODIUM
     Indication: PAIN
     Dosage: UNK,1
     Route: 048
     Dates: start: 20170401

REACTIONS (2)
  - Expired product administered [Recovered/Resolved with Sequelae]
  - Incorrect drug administration duration [Recovered/Resolved with Sequelae]
